FAERS Safety Report 11165628 (Version 3)
Quarter: 2015Q3

REPORT INFORMATION
  Report Type: Spontaneous
  Country: US (occurrence: US)
  Receive Date: 20150604
  Receipt Date: 20150709
  Transmission Date: 20151125
  Serious: No
  Sender: FDA-Public Use
  Company Number: US-PFIZER INC-2015184675

PATIENT
  Sex: Female

DRUGS (1)
  1. LYRICA [Suspect]
     Active Substance: PREGABALIN
     Dosage: 50 MG, UNK

REACTIONS (5)
  - Impaired driving ability [Unknown]
  - Pain [Unknown]
  - Intentional product misuse [Unknown]
  - General physical health deterioration [Unknown]
  - Somnolence [Unknown]
